FAERS Safety Report 6715996-2 (Version None)
Quarter: 2010Q2

REPORT INFORMATION
  Report Type: 
  Country: None (occurrence: None)
  Receive Date: 20100507
  Receipt Date: 20100303
  Transmission Date: 20101027
  Serious: Yes (Hospitalization)
  Sender: FDA-Public Use
  Company Number: GB-PFIZER INC-2010022776

PATIENT
  Sex: Male

DRUGS (10)
  1. SUNITINIB MALATE [Suspect]
     Indication: RENAL CANCER
     Dosage: 25 MG, UNK
     Route: 048
     Dates: start: 20060731, end: 20100202
  2. ZOLEDRONIC ACID [Suspect]
     Dosage: UNK
     Dates: start: 20090420
  3. ZOLEDRONIC ACID [Suspect]
     Dosage: UNK
     Dates: start: 20090518
  4. BENDROFLUMETHIAZIDE [Concomitant]
     Indication: HYPERTENSION
     Dosage: 2.5 MG, 1X/DAY
     Route: 048
     Dates: start: 20090101
  5. DEXAMETHASONE [Concomitant]
     Dosage: 1 MG, 1X/DAY
     Route: 048
     Dates: start: 20090101
  6. LEVOTHYROXINE [Concomitant]
     Indication: HYPOTHYROIDISM
     Dosage: 25 MG, 1X/DAY
     Route: 048
     Dates: start: 20091201
  7. CODEINE [Concomitant]
     Indication: PAIN
     Dosage: 15 MG, 4X/DAY
     Route: 048
     Dates: start: 20060101
  8. PARACETAMOL [Concomitant]
     Indication: PAIN
     Dosage: 1 G, 1X/DAY
     Route: 048
     Dates: start: 20060101
  9. OMEPRAZOLE [Concomitant]
     Dosage: 20 MG, 1X/DAY
     Route: 048
     Dates: start: 20060101
  10. AMOXICILLIN [Concomitant]
     Indication: TOOTH INFECTION
     Dosage: UNK
     Route: 048
     Dates: start: 20100101, end: 20100201

REACTIONS (1)
  - OSTEONECROSIS OF JAW [None]
